FAERS Safety Report 8771693 (Version 6)
Quarter: 2013Q3

REPORT INFORMATION
  Report Type: Spontaneous
  Country: US (occurrence: US)
  Receive Date: 20120906
  Receipt Date: 20130927
  Transmission Date: 20140515
  Serious: Yes (Hospitalization, Disabling, Other)
  Sender: FDA-Public Use
  Company Number: US-MERCK-1208USA011345

PATIENT
  Sex: Female

DRUGS (2)
  1. FOSAMAX [Suspect]
     Indication: OSTEOPOROSIS
     Dosage: 10 MG, UNK
     Route: 048
     Dates: start: 19990309, end: 200201
  2. FOSAMAX [Suspect]
     Dosage: 70 MG, UNK
     Route: 048
     Dates: start: 200201, end: 20070321

REACTIONS (17)
  - Femur fracture [Not Recovered/Not Resolved]
  - Open reduction of fracture [Unknown]
  - Multiple sclerosis [Not Recovered/Not Resolved]
  - Osteoporosis [Not Recovered/Not Resolved]
  - Lower limb fracture [Recovering/Resolving]
  - Lower limb fracture [Unknown]
  - Fall [Unknown]
  - Urinary tract infection [Recovered/Resolved]
  - Paraplegia [Not Recovered/Not Resolved]
  - Decubitus ulcer [Unknown]
  - Decubitus ulcer [Unknown]
  - Fungal infection [Unknown]
  - Decubitus ulcer [Unknown]
  - Osteopenia [Unknown]
  - Wound dehiscence [Unknown]
  - Urinary incontinence [Not Recovered/Not Resolved]
  - Pyrexia [Unknown]
